FAERS Safety Report 5919659-2 (Version None)
Quarter: 2008Q4

REPORT INFORMATION
  Report Type: 
  Country: None (occurrence: None)
  Receive Date: 20081015
  Receipt Date: 20081006
  Transmission Date: 20090506
  Serious: Yes (Hospitalization, Other)
  Sender: FDA-Public Use
  Company Number: US-AVENTIS-200718327US

PATIENT
  Sex: Male

DRUGS (22)
  1. KETEK [Suspect]
     Dosage: DOSE: 400 MG 2X DAY
     Dates: start: 20051102, end: 20051112
  2. KETEK [Suspect]
     Dosage: DOSE: 400 MG TWICE A DAY
     Dates: start: 20060111, end: 20060121
  3. KETEK [Suspect]
     Indication: BRONCHITIS
     Dosage: DOSE: 400 MG 2X DAY
     Dates: start: 20051102, end: 20051112
  4. KETEK [Suspect]
     Dosage: DOSE: 400 MG TWICE A DAY
     Dates: start: 20060111, end: 20060121
  5. AZITHROMYCIN [Suspect]
     Dosage: DOSE: UNK
  6. AVELOX [Suspect]
     Dosage: DOSE: UNK
  7. PROZAC [Concomitant]
     Dates: start: 20060104
  8. ADVAIR DISKUS 100/50 [Concomitant]
     Dosage: DOSE: 500/50 MCG
     Dates: start: 20060109
  9. BENZONATATE CAPSULES [Concomitant]
     Dates: start: 20060111
  10. COLCHICINE TABS [Concomitant]
     Dates: start: 20060111
  11. NASACORT AQ [Concomitant]
     Dosage: DOSE QUANTITY: 01122006
  12. ACETAMINOPHEN W/ CODEINE [Concomitant]
     Dosage: DOSE: 12MG/5ML
     Dates: start: 20060116
  13. DIOVANE [Concomitant]
     Dates: start: 20060119
  14. ALLEGRA [Concomitant]
     Dates: start: 20060119
  15. TRICOR                             /00090101/ [Concomitant]
     Dates: start: 20060209
  16. LIPITOR [Concomitant]
     Dates: start: 20060209
  17. TOPROL-XL [Concomitant]
     Dates: start: 20060224
  18. LOTREL [Concomitant]
     Dosage: DOSE: 10/20
     Dates: start: 20060224
  19. ALBUTEROL [Concomitant]
     Dosage: DOSE: UNK
     Route: 055
     Dates: start: 20060228
  20. PROTONIX [Concomitant]
     Dates: start: 20060303
  21. ULTRACET [Concomitant]
     Dosage: DOSE: 37.5/325
     Dates: start: 20060303
  22. XANAX [Concomitant]

REACTIONS (13)
  - ABDOMINAL PAIN UPPER [None]
  - CHANGE OF BOWEL HABIT [None]
  - CONSTIPATION [None]
  - DECREASED APPETITE [None]
  - DIARRHOEA [None]
  - DYSURIA [None]
  - EMOTIONAL DISTRESS [None]
  - HEPATIC STEATOSIS [None]
  - LIPASE INCREASED [None]
  - NAUSEA [None]
  - PANCREATITIS [None]
  - POLLAKIURIA [None]
  - WEIGHT DECREASED [None]
